FAERS Safety Report 9837433 (Version 1)
Quarter: 2013Q4

REPORT INFORMATION
  Report Type: Spontaneous
  Country: US (occurrence: None)
  Receive Date: 20131205
  Receipt Date: 20131205
  Transmission Date: 20140711
  Serious: Yes (Other)
  Sender: FDA-Public Use
  Company Number: 163-POMAL-13093114

PATIENT
  Age: 81 Year
  Sex: Male

DRUGS (9)
  1. POMALYST [Suspect]
     Indication: PLASMA CELL MYELOMA
     Route: 048
     Dates: start: 20130905
  2. AMLODIPINE (AMLODIPINE) [Concomitant]
  3. KLOR-CON (POTASSIUM CHLORIDE) [Concomitant]
  4. BYSTOLIC (NEBIVOLOL HYDROCHLORIDE) [Concomitant]
  5. TERAZOSIN (TERAZOSIN) [Concomitant]
  6. PRADAZXA(DABIGATRAN ETEXILATE MESILATE) [Concomitant]
  7. ALLOPURINOL (ALLOPURINOL) [Concomitant]
  8. RESTORIL (TEMAZEPAM) [Concomitant]
  9. OMEPRAZOLE (OMEPRAZOLE) [Concomitant]

REACTIONS (5)
  - Rash macular [None]
  - Otorrhoea [None]
  - Fatigue [None]
  - Dizziness [None]
  - Muscle spasms [None]
